FAERS Safety Report 9840489 (Version 1)
Quarter: 2014Q1

REPORT INFORMATION
  Report Type: Spontaneous
  Country: US (occurrence: None)
  Receive Date: 20140121
  Receipt Date: 20140121
  Transmission Date: 20141002
  Serious: Yes (Hospitalization)
  Sender: FDA-Public Use
  Company Number: None

PATIENT
  Age: 81 Year
  Sex: Male
  Weight: 67.1 kg

DRUGS (4)
  1. ABRAXANE [Suspect]
     Indication: PANCREATIC CARCINOMA METASTATIC
     Route: 042
     Dates: start: 20130212, end: 20130701
  2. OXALIPLATIN [Suspect]
     Route: 042
  3. LEUCO [Suspect]
     Route: 042
  4. 5FU [Suspect]
     Dosage: X 2DAYS?CIV 48HRS
     Route: 042

REACTIONS (5)
  - Pyrexia [None]
  - Pancreatic mass [None]
  - Metastases to liver [None]
  - Sepsis [None]
  - Atelectasis [None]
